FAERS Safety Report 8470378-0 (Version None)
Quarter: 2012Q2

REPORT INFORMATION
  Report Type: 
  Country: None (occurrence: None)
  Receive Date: 20120627
  Receipt Date: 20120621
  Transmission Date: 20120825
  Serious: Yes (Other)
  Sender: FDA-Public Use
  Company Number: CA-AMGEN-CANSP2012028944

PATIENT
  Age: 56 Year
  Sex: Female
  Weight: 80.5 kg

DRUGS (4)
  1. ENBREL [Suspect]
     Dosage: 50 MG, QWK
     Dates: start: 20110805
  2. ATENOLOL [Concomitant]
     Indication: HYPERTENSION
     Dosage: UNK
     Route: 048
  3. ENBREL [Suspect]
     Indication: RHEUMATOID ARTHRITIS
     Dosage: 50 UNK, QWK
     Route: 058
     Dates: start: 20110301, end: 20120504
  4. TERAZOSIN HCL [Concomitant]
     Indication: HYPERTENSION
     Dosage: UNK
     Route: 048

REACTIONS (8)
  - OCULAR HYPERAEMIA [None]
  - NEURALGIA [None]
  - VISION BLURRED [None]
  - NECK PAIN [None]
  - EAR PAIN [None]
  - HEADACHE [None]
  - EYE PAIN [None]
  - VIITH NERVE PARALYSIS [None]
